FAERS Safety Report 6381662-9 (Version None)
Quarter: 2009Q3

REPORT INFORMATION
  Report Type: 
  Country: None (occurrence: None)
  Receive Date: 20090930
  Receipt Date: 20090626
  Transmission Date: 20100115
  Serious: Yes (Other)
  Sender: FDA-Public Use
  Company Number: PHEH2009US11119

PATIENT
  Sex: Female
  Weight: 41 kg

DRUGS (9)
  1. EXJADE [Suspect]
     Indication: SICKLE CELL ANAEMIA
     Dosage: 1250 MG, QD
     Route: 048
     Dates: start: 20080601, end: 20081201
  2. EXJADE [Suspect]
     Indication: IRON METABOLISM DISORDER
  3. PERCOCET [Concomitant]
  4. PHENERGAN ^AVENTIS PHARMA^ [Concomitant]
  5. CLARINEX                                /DEN/ [Concomitant]
  6. CALCIUM [Concomitant]
  7. VITAMIN D [Concomitant]
  8. LORTAB [Concomitant]
  9. HYDREA [Concomitant]

REACTIONS (2)
  - HEADACHE [None]
  - SKIN EXFOLIATION [None]
